FAERS Safety Report 12313425 (Version 1)
Quarter: 2016Q2

REPORT INFORMATION
  Report Type: Report from Study
  Country: IT (occurrence: IT)
  Receive Date: 20160428
  Receipt Date: 20160428
  Transmission Date: 20160815
  Serious: Yes (Other)
  Sender: FDA-Public Use
  Company Number: IT-TEVA-654404ACC

PATIENT
  Age: 64 Year
  Sex: Male

DRUGS (3)
  1. INTERFERON ALFA-2A PEGYLATED [Suspect]
     Active Substance: PEGINTERFERON ALFA-2A
     Indication: HEPATITIS C
     Dosage: 1 DOSAGE FORMS DAILY;
     Route: 058
     Dates: start: 20130917, end: 20140831
  2. TELAPREVIR [Suspect]
     Active Substance: TELAPREVIR
     Indication: HEPATITIS C
     Dosage: 2250 MILLIGRAM DAILY;
     Route: 048
     Dates: start: 20130917, end: 20131218
  3. RIBAVIRIN. [Suspect]
     Active Substance: RIBAVIRIN
     Indication: HEPATITIS C
     Dosage: 1 DOSAGE FORMS DAILY;
     Route: 048
     Dates: start: 20130917, end: 20140831

REACTIONS (2)
  - Urinary tract infection [Recovered/Resolved]
  - Haemoglobin decreased [Recovered/Resolved]

NARRATIVE: CASE EVENT DATE: 20131002
